FAERS Safety Report 19098132 (Version 15)
Quarter: 2021Q4

REPORT INFORMATION
  Report Type: Report from Study
  Country: GB (occurrence: GB)
  Receive Date: 20210406
  Receipt Date: 20211115
  Transmission Date: 20220303
  Serious: Yes (Hospitalization, Other)
  Sender: FDA-Public Use
  Company Number: None

PATIENT
  Age: 51 Year
  Sex: Female

DRUGS (35)
  1. CAPECITABINE [Suspect]
     Active Substance: CAPECITABINE
     Indication: HER2 positive breast cancer
     Dosage: MANUFACTURER UNKNOWN
     Route: 048
     Dates: start: 20170905, end: 20171219
  2. CARBOPLATIN [Suspect]
     Active Substance: CARBOPLATIN
     Indication: HER2 positive breast cancer
     Dosage: 240 MILLIGRAM, QW (DOSE FORM: 120)
     Route: 042
     Dates: start: 20181219, end: 20190117
  3. DOCETAXEL [Suspect]
     Active Substance: DOCETAXEL
     Indication: HER2 positive breast cancer
     Dosage: 132 MILLIGRAM, Q3W (DOSE FORM:120)
     Route: 042
     Dates: start: 20150925, end: 20151016
  4. TRASTUZUMAB [Suspect]
     Active Substance: TRASTUZUMAB
     Indication: HER2 positive breast cancer
     Dosage: 600 MILLIGRAM, QD
     Route: 042
     Dates: start: 20150924, end: 20150924
  5. ATEZOLIZUMAB [Suspect]
     Active Substance: ATEZOLIZUMAB
     Indication: HER2 positive breast cancer
     Dosage: 1200 MG, Q3W (TARGETED THERAPY)
     Route: 042
     Dates: start: 20170510, end: 20170628
  6. ERIBULIN [Suspect]
     Active Substance: ERIBULIN
     Indication: HER2 positive breast cancer
     Dosage: 2.5 MG
     Route: 042
     Dates: start: 20180822, end: 20181010
  7. NERATINIB [Suspect]
     Active Substance: NERATINIB
     Indication: HER2 positive breast cancer
     Dosage: 240 MILLIGRAM, QD
     Route: 048
     Dates: start: 20180220, end: 20180717
  8. PERTUZUMAB [Suspect]
     Active Substance: PERTUZUMAB
     Indication: HER2 positive breast cancer
     Dosage: 420 MG, Q3W
     Route: 042
     Dates: start: 20170324
  9. ADO-TRASTUZUMAB EMTANSINE [Suspect]
     Active Substance: ADO-TRASTUZUMAB EMTANSINE
     Indication: HER2 positive breast cancer
     Dosage: Q3W
     Route: 042
     Dates: start: 20150924, end: 20150924
  10. AMOXICILLIN [Concomitant]
     Active Substance: AMOXICILLIN
     Indication: Upper respiratory tract infection
     Dosage: 1500 MG, 500 MG, TID (3/DAY) (0.33 DAY)
     Route: 048
     Dates: start: 20160330
  11. CITALOPRAM [Concomitant]
     Active Substance: CITALOPRAM HYDROBROMIDE
     Indication: Product used for unknown indication
     Dosage: 20 MG, QD
     Route: 048
  12. HUMALOG [Concomitant]
     Active Substance: INSULIN LISPRO
     Indication: Product used for unknown indication
     Dosage: 3 OT, QD (16 UNIT)
     Route: 058
  13. LANSOPRAZOLE [Concomitant]
     Active Substance: LANSOPRAZOLE
     Indication: Product used for unknown indication
     Dosage: 30 MG, QD
     Route: 048
  14. LEVEMIR [Concomitant]
     Active Substance: INSULIN DETEMIR
     Indication: Product used for unknown indication
     Dosage: 1 UNK, QD (38 UNIT)
     Route: 058
  15. LOPERAMIDE [Concomitant]
     Active Substance: LOPERAMIDE
     Indication: Product used for unknown indication
     Dosage: 2 MG
     Route: 048
     Dates: start: 20150922, end: 20160122
  16. METFORMIN [Concomitant]
     Active Substance: METFORMIN HYDROCHLORIDE
     Indication: Product used for unknown indication
     Dosage: 1000 MG, QD
     Route: 048
  17. ZOPICLONE [Concomitant]
     Active Substance: ZOPICLONE
     Indication: Insomnia
     Dosage: 3.75 MG, QD
     Route: 048
     Dates: start: 20170812, end: 20170822
  18. AMITRIPTYLINE [Concomitant]
     Active Substance: AMITRIPTYLINE
     Indication: Neuropathy peripheral
     Dosage: 30 MG, QD,10 MG, TID (3/DAY) (0.33 DAY)/30 MG
     Route: 048
     Dates: start: 201608
  19. BUDESONIDE [Concomitant]
     Active Substance: BUDESONIDE
     Dates: start: 20180220
  20. DOCUSATE SODIUM [Concomitant]
     Active Substance: DOCUSATE SODIUM
  21. DOMPERIDONE [Concomitant]
     Active Substance: DOMPERIDONE
  22. GLYCERIN [Concomitant]
     Active Substance: GLYCERIN
     Route: 048
     Dates: start: 20180511
  23. HALOPERIDOL [Concomitant]
     Active Substance: HALOPERIDOL
  24. BUTYLSCOPOLAMINE BROMIDE [Concomitant]
     Active Substance: BUTYLSCOPOLAMINE BROMIDE
     Dosage: ALSO FROM 19-DEC-2017 TO 2018
     Dates: start: 20171219
  25. LACTULOSE [Concomitant]
     Active Substance: LACTULOSE
  26. POLYETHYLENE GLYCOLS [Concomitant]
     Active Substance: POLYETHYLENE GLYCOLS
  27. OMEPRAZOLE [Concomitant]
     Active Substance: OMEPRAZOLE
  28. ONDANSETRON [Concomitant]
     Active Substance: ONDANSETRON
  29. RANITIDINE [Concomitant]
     Active Substance: RANITIDINE
  30. SENNOSIDE B [Concomitant]
     Active Substance: SENNOSIDE B
  31. DEXAMETHASONE [Concomitant]
     Active Substance: DEXAMETHASONE
     Indication: Product used for unknown indication
     Dosage: 4 MG, QD
     Route: 048
     Dates: start: 20181030, end: 20181113
  32. DIAZEPAM [Concomitant]
     Active Substance: DIAZEPAM
     Indication: Anxiety
     Dosage: UNK, TID
     Route: 048
     Dates: start: 20180515
  33. DULOXETINE [Concomitant]
     Active Substance: DULOXETINE
     Indication: Anxiety
     Dosage: 60 MG
     Route: 048
     Dates: start: 20181115
  34. GABAPENTIN [Concomitant]
     Active Substance: GABAPENTIN
     Indication: Neuropathy peripheral
     Dosage: 100 MG, TID
     Dates: start: 20171219
  35. PIMPINELLA ANISUM [Concomitant]
     Active Substance: PIMPINELLA ANISUM WHOLE
     Indication: Gastrooesophageal reflux disease
     Dosage: 10 ML
     Route: 048
     Dates: start: 201707

REACTIONS (8)
  - Neuropathy peripheral [Recovered/Resolved]
  - Aphonia [Recovered/Resolved]
  - Upper respiratory tract infection [Recovered/Resolved]
  - Hyperglycaemia [Recovered/Resolved]
  - Hot flush [Recovered/Resolved]
  - Cough [Recovered/Resolved]
  - Constipation [Recovered/Resolved]
  - Bundle branch block left [Recovered/Resolved]

NARRATIVE: CASE EVENT DATE: 20160301
